FAERS Safety Report 11777078 (Version 1)
Quarter: 2015Q4

REPORT INFORMATION
  Report Type: Spontaneous
  Country: US (occurrence: US)
  Receive Date: 20151125
  Receipt Date: 20151125
  Transmission Date: 20160304
  Serious: No
  Sender: FDA-Public Use
  Company Number: US-TEVA-570963USA

PATIENT
  Sex: Male

DRUGS (1)
  1. AMIODARONE [Suspect]
     Active Substance: AMIODARONE
     Indication: VENTRICULAR ARRHYTHMIA
     Dosage: 400 MG BID
     Route: 048
     Dates: start: 20150608

REACTIONS (3)
  - Insomnia [Unknown]
  - Dizziness [Unknown]
  - Asthenia [Unknown]
